FAERS Safety Report 7860034-1 (Version None)
Quarter: 2011Q4

REPORT INFORMATION
  Report Type: 
  Country: None (occurrence: None)
  Receive Date: 20111025
  Receipt Date: 20111011
  Transmission Date: 20120403
  Serious: Yes (Hospitalization)
  Sender: FDA-Public Use
  Company Number: 2011HGS-002631

PATIENT
  Age: 48 Year

DRUGS (1)
  1. BENLYSTA [Suspect]
     Indication: SYSTEMIC LUPUS ERYTHEMATOSUS
     Dosage: 1 IN 35 D, INTRAVENOUS DRIP,
     Route: 041
     Dates: start: 20110908

REACTIONS (4)
  - RENAL FAILURE ACUTE [None]
  - PLATELET COUNT DECREASED [None]
  - SEPTIC SHOCK [None]
  - ESCHERICHIA URINARY TRACT INFECTION [None]
